FAERS Safety Report 6305791-0 (Version None)
Quarter: 2009Q3

REPORT INFORMATION
  Report Type: 
  Country: None (occurrence: None)
  Receive Date: 20090812
  Receipt Date: 20071120
  Transmission Date: 20100115
  Serious: Yes (Other)
  Sender: FDA-Public Use
  Company Number: US-ASTRAZENECA-2006UW23017

PATIENT
  Age: 512 Month
  Sex: Female
  Weight: 109.8 kg

DRUGS (7)
  1. SEROQUEL [Suspect]
     Indication: INSOMNIA
     Route: 048
     Dates: start: 20030101, end: 20050801
  2. SEROQUEL [Suspect]
     Dosage: 100 MG DISPENSED
     Route: 048
     Dates: start: 20041209, end: 20051026
  3. RISPERDAL [Concomitant]
  4. ZYPREXA [Concomitant]
  5. EFFEXOR XR [Concomitant]
     Dosage: 150 MG DISPENSED
     Route: 048
     Dates: start: 20050103
  6. KLONOPIN [Concomitant]
     Route: 048
     Dates: start: 20050113
  7. DEPAKOTE [Concomitant]
     Route: 048
     Dates: start: 20030914

REACTIONS (3)
  - DIABETES MELLITUS [None]
  - DIABETIC NEUROPATHY [None]
  - OVERDOSE [None]
